FAERS Safety Report 4288020-1 (Version None)
Quarter: 2004Q1

REPORT INFORMATION
  Report Type: 
  Country: None (occurrence: None)
  Receive Date: 20040209
  Receipt Date: 20031118
  Transmission Date: 20041129
  Serious: No
  Sender: FDA-Public Use
  Company Number: US-GLAXOSMITHKLINE-A0440193A

PATIENT
  Age: 55 Year
  Sex: Male

DRUGS (2)
  1. PAXIL [Suspect]
     Indication: DEPRESSION
     Dosage: 25MG PER DAY
     Route: 048
     Dates: start: 20031101
  2. XANAX [Concomitant]

REACTIONS (4)
  - DECREASED APPETITE [None]
  - LIBIDO DECREASED [None]
  - VISION BLURRED [None]
  - WEIGHT DECREASED [None]
